FAERS Safety Report 9329417 (Version 1)
Quarter: 2013Q2

REPORT INFORMATION
  Report Type: Spontaneous
  Country: US (occurrence: None)
  Receive Date: 20130531
  Receipt Date: 20130531
  Transmission Date: 20140414
  Serious: Yes (Other)
  Sender: FDA-Public Use
  Company Number: 2012-3757

PATIENT
  Age: 13 Year
  Sex: Female
  Weight: 38 kg

DRUGS (6)
  1. INCRELEX [Suspect]
     Indication: GROWTH RETARDATION
     Route: 058
     Dates: start: 20120619, end: 20120727
  2. OMNICEF [Suspect]
     Indication: EAR INFECTION
     Dosage: DOSAGE TAKEN TWICE A DAY FOR A WEEK.
     Dates: start: 201207
  3. EARDROP SAMPLE [Suspect]
     Indication: EAR INFECTION
     Dates: start: 201207
  4. VITAMIN D (ERGOCALCIFEROL) [Concomitant]
  5. ACETAMINOPHEN (PARACETAMOL) [Concomitant]
  6. NASONEX (MOMETASONE FUROATE) [Concomitant]

REACTIONS (11)
  - Hypersensitivity [None]
  - Otitis media [None]
  - Otitis externa [None]
  - Arthralgia [None]
  - Pain in extremity [None]
  - Pain in extremity [None]
  - Haemoglobin decreased [None]
  - Haematocrit decreased [None]
  - Somnolence [None]
  - Palpitations [None]
  - Hypoglycaemia [None]
